FAERS Safety Report 7204648-0 (Version None)
Quarter: 2010Q4

REPORT INFORMATION
  Report Type: 
  Country: None (occurrence: None)
  Receive Date: 20101220
  Receipt Date: 20101203
  Transmission Date: 20110411
  Serious: Yes (Hospitalization)
  Sender: FDA-Public Use
  Company Number: IPC201012-000319

PATIENT
  Age: 53 Year
  Sex: Male

DRUGS (3)
  1. ATENOLOL [Suspect]
  2. ASPIRIN [Suspect]
  3. SIMVASTATIN [Suspect]

REACTIONS (3)
  - ARTERIOSCLEROSIS CORONARY ARTERY [None]
  - HEART RATE DECREASED [None]
  - PRINZMETAL ANGINA [None]
